FAERS Safety Report 8537828-2 (Version None)
Quarter: 2012Q3

REPORT INFORMATION
  Report Type: 
  Country: None (occurrence: None)
  Receive Date: 20120725
  Receipt Date: 20120712
  Transmission Date: 20120928
  Serious: No
  Sender: FDA-Public Use
  Company Number: US-009507513-1207USA008869

PATIENT

DRUGS (1)
  1. STROMECTOL [Suspect]
     Indication: INFECTION PROTOZOAL
     Dosage: UNK
     Route: 048

REACTIONS (3)
  - OFF LABEL USE [None]
  - NO ADVERSE EVENT [None]
  - INAPPROPRIATE SCHEDULE OF DRUG ADMINISTRATION [None]
